FAERS Safety Report 23311488 (Version 2)
Quarter: 2023Q4

REPORT INFORMATION
  Report Type: Spontaneous
  Country: AT (occurrence: AT)
  Receive Date: 20231219
  Receipt Date: 20231229
  Transmission Date: 20240110
  Serious: Yes (Death, Other)
  Sender: FDA-Public Use
  Company Number: AT-CELLTRION INC.-2023AT023791

PATIENT

DRUGS (11)
  1. TRASTUZUMAB [Suspect]
     Active Substance: TRASTUZUMAB
     Indication: Oesophageal cancer metastatic
     Dosage: SIXTH-LINE IMMUNOCHEMOTHERAPY WAS NIVOLUMAB IN COMBINATION WITH TRASTUZUMAB
     Route: 065
     Dates: start: 202205
  2. TRASTUZUMAB [Suspect]
     Active Substance: TRASTUZUMAB
     Dosage: UNK
     Route: 065
     Dates: start: 202002, end: 202011
  3. ADO-TRASTUZUMAB EMTANSINE [Concomitant]
     Active Substance: ADO-TRASTUZUMAB EMTANSINE
     Dosage: UNK
     Route: 065
  4. TRASTUZUMAB DERUXTECAN [Concomitant]
     Active Substance: TRASTUZUMAB DERUXTECAN
     Dosage: (6.4 MILLIGRAM/KG, Q3WK) EVERY 3 WEEKS
     Route: 042
     Dates: start: 202111
  5. FLUOROURACIL [Concomitant]
     Active Substance: FLUOROURACIL
     Dosage: UNK
     Route: 065
     Dates: start: 202011
  6. FLUOROURACIL\IRINOTECAN\LEUCOVORIN [Concomitant]
     Active Substance: FLUOROURACIL\IRINOTECAN\LEUCOVORIN
     Dosage: UNK
     Route: 065
     Dates: start: 202011, end: 202105
  7. RAMUCIRUMAB [Concomitant]
     Active Substance: RAMUCIRUMAB
     Dosage: UNK
     Route: 065
     Dates: start: 202011, end: 202105
  8. RAMUCIRUMAB [Concomitant]
     Active Substance: RAMUCIRUMAB
     Dosage: RAMUCIRUMAB IN COMBINATION WITH
     Dates: end: 202105
  9. FLUOROURACIL\LEUCOVORIN CALCIUM\OXALIPLATIN [Concomitant]
     Active Substance: FLUOROURACIL\LEUCOVORIN CALCIUM\OXALIPLATIN
     Dosage: UNK
     Route: 065
     Dates: start: 202002, end: 202011
  10. PACLITAXEL [Concomitant]
     Active Substance: PACLITAXEL
     Dosage: UNK
     Route: 065
  11. NIVOLUMAB [Concomitant]
     Active Substance: NIVOLUMAB
     Dosage: SIXTH-LINE IMMUNOCHEMOTHERAPY WAS NIVOLUMAB IN COMBINATION WITH TRASTUZUMAB
     Route: 065
     Dates: start: 202205

REACTIONS (5)
  - Death [Fatal]
  - Oesophageal cancer metastatic [Unknown]
  - Polyneuropathy [Recovered/Resolved]
  - Thrombocytopenia [Unknown]
  - Therapy partial responder [Unknown]

NARRATIVE: CASE EVENT DATE: 20200501
